FAERS Safety Report 9408306 (Version 1)
Quarter: 2013Q3

REPORT INFORMATION
  Report Type: Spontaneous
  Country: TR (occurrence: TR)
  Receive Date: 20130718
  Receipt Date: 20130718
  Transmission Date: 20140515
  Serious: Yes (Death, Hospitalization)
  Sender: FDA-Public Use
  Company Number: PHHY2013TR075850

PATIENT
  Age: 17 Year
  Sex: Female

DRUGS (3)
  1. METFORMIN [Suspect]
     Dosage: 75 DF (1000 MG (75 G)), UNK
  2. RUPATADINE [Interacting]
     Dosage: 20 DF (20 PILLS OF 10 MG EACH), UNK
  3. AMITRIPTYLINE [Concomitant]
     Indication: MAJOR DEPRESSION
     Dosage: 10 MG, DAILY

REACTIONS (13)
  - Ventricular tachycardia [Fatal]
  - Suicide attempt [Unknown]
  - Overdose [Unknown]
  - Lactic acidosis [Unknown]
  - Blood lactate dehydrogenase increased [Unknown]
  - Blood pressure decreased [Unknown]
  - Heart rate increased [Unknown]
  - Blood gases abnormal [Unknown]
  - Blood pH decreased [Unknown]
  - General physical health deterioration [Unknown]
  - Lethargy [Unknown]
  - Blood glucose decreased [Unknown]
  - Drug interaction [Unknown]
